FAERS Safety Report 9746414 (Version 1)
Quarter: 2013Q4

REPORT INFORMATION
  Report Type: Spontaneous
  Country: FR (occurrence: FR)
  Receive Date: 20131211
  Receipt Date: 20131211
  Transmission Date: 20140711
  Serious: Yes (Hospitalization)
  Sender: FDA-Public Use
  Company Number: FR-GLAXOSMITHKLINE-B0950268A

PATIENT
  Age: 70 Year
  Sex: Female

DRUGS (13)
  1. WELLVONE [Suspect]
     Indication: TOXOPLASMOSIS
     Route: 048
     Dates: start: 20131009, end: 20131109
  2. ACICLOVIR [Concomitant]
     Indication: PRODUCT USED FOR UNKNOWN INDICATION
     Route: 048
  3. INIPOMP [Concomitant]
     Indication: PRODUCT USED FOR UNKNOWN INDICATION
     Route: 048
  4. METFORMINE [Concomitant]
     Indication: DIABETES MELLITUS
     Route: 048
  5. CETIRIZINE [Concomitant]
     Indication: PRODUCT USED FOR UNKNOWN INDICATION
     Route: 048
  6. SERETIDE [Concomitant]
     Indication: ASTHMA
     Route: 065
  7. VENTOLINE [Concomitant]
     Indication: ASTHMA
     Route: 065
  8. GAVISCON [Concomitant]
     Indication: PRODUCT USED FOR UNKNOWN INDICATION
     Route: 065
  9. LEXOMIL [Concomitant]
     Indication: PRODUCT USED FOR UNKNOWN INDICATION
     Route: 065
  10. DOLIPRANE [Concomitant]
     Indication: PRODUCT USED FOR UNKNOWN INDICATION
     Route: 065
  11. NASACORT [Concomitant]
     Indication: PRODUCT USED FOR UNKNOWN INDICATION
     Route: 065
  12. CORTICOID [Concomitant]
     Indication: RHEUMATOID ARTHRITIS
     Route: 065
  13. HUMAN IMMUNOGLOBULIN [Concomitant]
     Indication: LYMPHOMA
     Route: 042

REACTIONS (6)
  - Hyperthermia [Recovered/Resolved]
  - Neutropenia [Recovered/Resolved]
  - General physical health deterioration [Recovered/Resolved]
  - Cough [Recovered/Resolved]
  - Headache [Recovered/Resolved]
  - Rhinorrhoea [Recovered/Resolved]
